FAERS Safety Report 5918411-1 (Version None)
Quarter: 2008Q4

REPORT INFORMATION
  Report Type: 
  Country: None (occurrence: None)
  Receive Date: 20081014
  Receipt Date: 20081014
  Transmission Date: 20090506
  Serious: Yes (Life-Threatening, Hospitalization)
  Sender: FDA-Public Use
  Company Number: None

PATIENT
  Age: 60 Year
  Sex: Female
  Weight: 92 kg

DRUGS (2)
  1. PERCOCET-5 [Suspect]
     Dosage: 20MG OXY/1300MG APAP Q 15MIN X- 8 DOSES PO
     Route: 048
     Dates: start: 20081012
  2. OSMOPREP [Suspect]
     Indication: COLONOSCOPY
     Dosage: 4 TABLETS Q 15MIN X 8 DOSES PO
     Route: 048

REACTIONS (6)
  - ACCIDENTAL EXPOSURE [None]
  - CIRCUMSTANCE OR INFORMATION CAPABLE OF LEADING TO MEDICATION ERROR [None]
  - DIZZINESS [None]
  - MEDICATION ERROR [None]
  - NAUSEA [None]
  - OVERDOSE [None]
